FAERS Safety Report 9906254 (Version 1)
Quarter: 2014Q1

REPORT INFORMATION
  Report Type: Spontaneous
  Country: JP (occurrence: JP)
  Receive Date: 20140218
  Receipt Date: 20140218
  Transmission Date: 20141002
  Serious: Yes (Other)
  Sender: FDA-Public Use
  Company Number: JP-PFIZER INC-2014046002

PATIENT
  Age: 28 Year
  Sex: Male

DRUGS (3)
  1. CISPLATIN [Suspect]
     Indication: TESTICULAR CANCER METASTATIC
     Dosage: UNK
     Route: 065
     Dates: start: 200906
  2. ETOPOSIDE [Suspect]
     Indication: TESTICULAR CANCER METASTATIC
     Dosage: UNK
     Route: 065
     Dates: start: 200906
  3. BLEOMYCIN [Suspect]
     Indication: TESTICULAR CANCER METASTATIC
     Dosage: UNK
     Route: 065
     Dates: start: 200906

REACTIONS (6)
  - Pneumomediastinum [Recovered/Resolved]
  - Bone marrow failure [Recovering/Resolving]
  - Nausea [Unknown]
  - Vomiting [Unknown]
  - Febrile neutropenia [Unknown]
  - Feeling abnormal [Unknown]
